FAERS Safety Report 10144501 (Version 2)
Quarter: 2014Q2

REPORT INFORMATION
  Report Type: Spontaneous
  Country: US (occurrence: US)
  Receive Date: 20140430
  Receipt Date: 20140512
  Transmission Date: 20141212
  Serious: No
  Sender: FDA-Public Use
  Company Number: US-009507513-1403USA014157

PATIENT
  Sex: Female
  Weight: 65.76 kg

DRUGS (3)
  1. OXYTROL FOR WOMEN [Suspect]
     Indication: HYPERTONIC BLADDER
     Dosage: UNK UNK, Q4D
     Route: 062
     Dates: start: 20140223
  2. OXYTROL FOR WOMEN [Suspect]
     Indication: URINARY INCONTINENCE
     Dosage: UNK UNK, Q4D
     Route: 062
     Dates: start: 20140223
  3. OXYTROL FOR WOMEN [Suspect]
     Indication: MICTURITION URGENCY

REACTIONS (4)
  - Application site pruritus [Unknown]
  - Application site rash [Recovered/Resolved]
  - Application site erythema [Unknown]
  - Product adhesion issue [Unknown]
